FAERS Safety Report 5708237-6 (Version None)
Quarter: 2008Q2

REPORT INFORMATION
  Report Type: 
  Country: None (occurrence: None)
  Receive Date: 20080417
  Receipt Date: 20080410
  Transmission Date: 20081010
  Serious: Yes (Other)
  Sender: FDA-Public Use
  Company Number: US-GILEAD-2008-0016058

PATIENT
  Sex: Female
  Weight: 91.799 kg

DRUGS (14)
  1. AMBRISENTAN [Suspect]
     Route: 048
     Dates: start: 20080116, end: 20080407
  2. AMBRISENTAN [Suspect]
     Route: 048
     Dates: start: 20070803, end: 20080115
  3. CELEXA [Concomitant]
     Route: 048
     Dates: start: 20080129
  4. FISH OIL [Concomitant]
     Dates: start: 20070920
  5. FUROSEMIDE [Concomitant]
     Dates: start: 20080219
  6. GABAPENTIN [Concomitant]
     Dates: start: 20070409
  7. HAWTHORN EXTRACT CAPSULES [Concomitant]
     Dates: start: 20071023
  8. PERCOCET-5 [Concomitant]
     Dosage: 5-325
     Dates: start: 20080129
  9. REVATIO [Concomitant]
     Dates: start: 20070330
  10. SPIRONOLACTONE [Concomitant]
     Dates: start: 20080219
  11. TYLENOL (CAPLET) [Concomitant]
     Dates: start: 20071012
  12. VALIUM [Concomitant]
     Dates: start: 20080324
  13. VITAMIN E [Concomitant]
     Dates: start: 20080320
  14. WARFARIN SODIUM [Concomitant]
     Dates: start: 20080115

REACTIONS (1)
  - ACCIDENTAL OVERDOSE [None]
